FAERS Safety Report 9641508 (Version 1)
Quarter: 2013Q4

REPORT INFORMATION
  Report Type: Report from Study
  Country: US (occurrence: US)
  Receive Date: 20131023
  Receipt Date: 20131023
  Transmission Date: 20140711
  Serious: No
  Sender: FDA-Public Use
  Company Number: US-ABBVIE-13P-163-1058982-00

PATIENT
  Age: 54 Year
  Sex: Female
  Weight: 70.37 kg

DRUGS (4)
  1. LUPRON DEPOT [Suspect]
     Indication: UTERINE LEIOMYOMA
     Dosage: MONTHLY
     Route: 030
     Dates: start: 20130212
  2. TIZANIDINE [Concomitant]
     Indication: PAIN
     Dosage: AT NIGHT, AS NEEDED
     Route: 048
     Dates: start: 201302
  3. TIZANIDINE [Concomitant]
     Indication: MUSCLE SPASMS
  4. PERCOCET [Concomitant]
     Indication: BACK PAIN
     Dosage: 1 PILL AT NIGHT, AS NEEDED
     Route: 048
     Dates: start: 201302

REACTIONS (2)
  - Pruritus [Not Recovered/Not Resolved]
  - Menstruation delayed [Not Recovered/Not Resolved]
